FAERS Safety Report 4510197-0 (Version None)
Quarter: 2004Q4

REPORT INFORMATION
  Report Type: 
  Country: None (occurrence: None)
  Receive Date: 20041124
  Receipt Date: 20000609
  Transmission Date: 20050328
  Serious: Yes (Hospitalization, Other)
  Sender: FDA-Public Use
  Company Number: US-MERCK-00061102

PATIENT
  Age: 65 Year
  Sex: Male
  Weight: 86 kg

DRUGS (10)
  1. VIOXX [Suspect]
     Indication: ARTHRITIS
     Route: 048
     Dates: start: 19990101, end: 20000601
  2. FLOVENT [Concomitant]
     Route: 065
  3. COMBIVENT [Concomitant]
     Route: 065
  4. ZANTAC [Concomitant]
     Route: 065
  5. AZMACORT [Concomitant]
     Route: 065
  6. SEREVENT [Concomitant]
     Route: 065
  7. SPIRONOLACTONE [Concomitant]
     Route: 065
  8. ANTIMICROBIAL THERAPY (COMPOSITION UNSPECIFIED) [Concomitant]
     Route: 065
  9. NICORETTE [Suspect]
     Indication: EX-SMOKER
     Dates: start: 19890101
  10. NICORETTE [Suspect]

REACTIONS (4)
  - ASTHMA [None]
  - ATRIAL FIBRILLATION [None]
  - BRONCHITIS [None]
  - DYSPNOEA [None]
